FAERS Safety Report 12177491 (Version 2)
Quarter: 2017Q1

REPORT INFORMATION
  Report Type: Spontaneous
  Country: US (occurrence: US)
  Receive Date: 20160314
  Receipt Date: 20170113
  Transmission Date: 20170428
  Serious: Yes (Other)
  Sender: FDA-Public Use
  Company Number: US-ELI_LILLY_AND_COMPANY-US201603003699

PATIENT
  Sex: Male

DRUGS (1)
  1. CYMBALTA [Suspect]
     Active Substance: DULOXETINE HYDROCHLORIDE
     Indication: DIABETIC NEUROPATHY
     Dosage: 60 MG, UNKNOWN
     Route: 065
     Dates: start: 20131202, end: 201503

REACTIONS (11)
  - Vertigo [Unknown]
  - Nausea [Unknown]
  - Vomiting [Unknown]
  - Hypersomnia [Unknown]
  - Nightmare [Unknown]
  - Dizziness [Unknown]
  - Sleep disorder [Unknown]
  - Mood swings [Unknown]
  - Paraesthesia [Unknown]
  - Headache [Unknown]
  - Drug withdrawal syndrome [Unknown]
